APPROVED DRUG PRODUCT: FLURAZEPAM HYDROCHLORIDE
Active Ingredient: FLURAZEPAM HYDROCHLORIDE
Strength: 15MG
Dosage Form/Route: CAPSULE;ORAL
Application: A071927 | Product #001
Applicant: PUREPAC PHARMACEUTICAL CO
Approved: Sep 9, 1987 | RLD: No | RS: No | Type: DISCN